FAERS Safety Report 9560489 (Version 1)
Quarter: 2013Q3

REPORT INFORMATION
  Report Type: Spontaneous
  Country: US (occurrence: US)
  Receive Date: 20130927
  Receipt Date: 20130927
  Transmission Date: 20140515
  Serious: No
  Sender: FDA-Public Use
  Company Number: US-BIOGENIDEC-2013BI051542

PATIENT
  Age: 51 Year
  Sex: Female

DRUGS (9)
  1. TECFIDERA [Suspect]
     Indication: MULTIPLE SCLEROSIS
     Route: 048
     Dates: start: 20130530, end: 20130605
  2. TECFIDERA [Suspect]
     Indication: MULTIPLE SCLEROSIS
     Route: 048
     Dates: start: 20130606
  3. ZOCOR [Concomitant]
  4. LASIX [Concomitant]
  5. OXCARBAZEPINE [Concomitant]
  6. FLUOXETINE [Concomitant]
  7. BACLOFEN [Concomitant]
  8. ESTRADIOL [Concomitant]
  9. IBUPROFEN [Concomitant]

REACTIONS (4)
  - Pain in extremity [Not Recovered/Not Resolved]
  - Nausea [Not Recovered/Not Resolved]
  - Vomiting [Not Recovered/Not Resolved]
  - Chest pain [Unknown]
